FAERS Safety Report 8610867-9 (Version None)
Quarter: 2012Q3

REPORT INFORMATION
  Report Type: 
  Country: None (occurrence: None)
  Receive Date: 20120808
  Receipt Date: 20120724
  Transmission Date: 20120928
  Serious: Yes (Death, Other)
  Sender: FDA-Public Use
  Company Number: FK201202153

PATIENT
  Age: 75 Year
  Sex: Male

DRUGS (4)
  1. OXALIPLATIN [Suspect]
     Indication: METASTATIC GASTRIC CANCER
  2. BEVACIZUMAB (BEVACIZUMAB) [Concomitant]
  3. LEUCOVORIN CALCIUM [Concomitant]
  4. FLUOROURACIL [Concomitant]

REACTIONS (3)
  - PNEUMOTHORAX [None]
  - PNEUMONITIS [None]
  - RESPIRATORY FAILURE [None]
